FAERS Safety Report 10024715 (Version 2)
Quarter: 2014Q2

REPORT INFORMATION
  Report Type: Spontaneous
  Country: US (occurrence: US)
  Receive Date: 20140320
  Receipt Date: 20140618
  Transmission Date: 20141212
  Serious: Yes (Other)
  Sender: FDA-Public Use
  Company Number: US-PFIZER INC-2014074916

PATIENT
  Age: 49 Year
  Sex: Female
  Weight: 85 kg

DRUGS (5)
  1. LIPITOR [Suspect]
     Indication: LOW DENSITY LIPOPROTEIN INCREASED
     Dosage: 40 MG, 1X/DAY
     Route: 048
     Dates: start: 20061016, end: 20080411
  2. LIPITOR [Suspect]
     Indication: CARDIOVASCULAR EVENT PROPHYLAXIS
     Dosage: 40 MG DAILY (80 MG, HALF TABLET) DAILY
     Route: 048
     Dates: start: 20080502, end: 20090106
  3. LIPITOR [Suspect]
     Dosage: 80 MG ALTERNATES HALF TAB AND ONE TAB EVERY EVENING
     Route: 048
     Dates: start: 20090106, end: 20090926
  4. LIPITOR [Suspect]
     Dosage: 80 MG ALTERNATES HALF TAB AND ONE TAB EVERY EVENING FOR TWO WEEKS
     Route: 048
     Dates: start: 20101001, end: 20101014
  5. LIPITOR [Suspect]
     Dosage: 80 MG, 1X/DAY
     Route: 048
     Dates: start: 20101015, end: 20120329

REACTIONS (4)
  - Type 2 diabetes mellitus [Not Recovered/Not Resolved]
  - Blindness [Not Recovered/Not Resolved]
  - Myalgia [Unknown]
  - Neuropathy peripheral [Not Recovered/Not Resolved]
